FAERS Safety Report 7200802-2 (Version None)
Quarter: 2010Q4

REPORT INFORMATION
  Report Type: 
  Country: None (occurrence: None)
  Receive Date: 20101228
  Receipt Date: 20101220
  Transmission Date: 20110411
  Serious: Yes (Other)
  Sender: FDA-Public Use
  Company Number: LT-ABBOTT-10P-287-0692995-00

PATIENT
  Age: 19 Year
  Sex: Female

DRUGS (1)
  1. KLACID SR MODIFIED RELEASED TABLETS [Suspect]
     Indication: BRONCHITIS
     Dosage: ONCE PER DAY
     Route: 048
     Dates: start: 20101216, end: 20101218

REACTIONS (3)
  - ASTHENIA [None]
  - DERMATITIS ALLERGIC [None]
  - NAUSEA [None]
